FAERS Safety Report 16116190 (Version 1)
Quarter: 2019Q1

REPORT INFORMATION
  Report Type: Spontaneous
  Country: US (occurrence: US)
  Receive Date: 20190326
  Receipt Date: 20190326
  Transmission Date: 20190418
  Serious: Yes (Other)
  Sender: FDA-Public Use
  Company Number: US-DRREDDYS-USA/USA/19/0108834

PATIENT
  Sex: Male
  Weight: 74.84 kg

DRUGS (2)
  1. CIPROFLOXACIN 750 MG [Suspect]
     Active Substance: CIPROFLOXACIN
     Indication: URINARY TRACT INFECTION
     Dosage: TWICE A DAY FOR 7 DAYS
     Route: 048
  2. LEVOFLOXACIN TABLETS [Suspect]
     Active Substance: LEVOFLOXACIN
     Indication: PRODUCT USED FOR UNKNOWN INDICATION
     Route: 065

REACTIONS (23)
  - Angina pectoris [Unknown]
  - Anal haemorrhage [Unknown]
  - Affect lability [Unknown]
  - Anger [Unknown]
  - Burning sensation [Unknown]
  - Vomiting [Unknown]
  - Pain [Unknown]
  - Arthropathy [Not Recovered/Not Resolved]
  - Abdominal pain upper [Unknown]
  - Dizziness [Unknown]
  - Nervous system disorder [Unknown]
  - Insomnia [Unknown]
  - Rash [Unknown]
  - Diarrhoea [Unknown]
  - Depression [Unknown]
  - Bone disorder [Not Recovered/Not Resolved]
  - Hallucination [Unknown]
  - Rectal haemorrhage [Unknown]
  - Nail growth abnormal [Unknown]
  - Haematuria [Unknown]
  - Skin discolouration [Unknown]
  - Anxiety [Unknown]
  - Hypoaesthesia [Unknown]
